FAERS Safety Report 8699775 (Version 2)
Quarter: 2012Q4

REPORT INFORMATION
  Report Type: 
  Country: GB (occurrence: GB)
  Receive Date: 20120802
  Receipt Date: 20120910
  Transmission Date: 20130627
  Serious: Yes (Death)
  Sender: FDA-Public Use
  Company Number: GB-TEVA-346459ISR

PATIENT
  Age: 45 Year
  Sex: Male
  Weight: 104.2 kg

DRUGS (4)
  1. CITALOPRAM [Suspect]
     Indication: DEPRESSED MOOD
     Dosage: 40mg
     Route: 048
  2. MIRTAZAPINE [Suspect]
     Indication: DEPRESSED MOOD
     Dosage: 30 milligram
     Route: 048
  3. CLOZARIL [Suspect]
     Indication: SCHIZOPHRENIA
     Dosage: 450mg
     Route: 048
     Dates: start: 19941205
  4. ARIPIPRAZOLE [Suspect]
     Indication: SCHIZOPHRENIA
     Dosage: 10mg
     Route: 048

REACTIONS (4)
  - Death [Fatal]
  - Congestive cardiomyopathy [Fatal]
  - Antipsychotic drug level above therapeutic [Unknown]
  - Cardiac failure congestive [Fatal]
